FAERS Safety Report 13690179 (Version 1)
Quarter: 2017Q2

REPORT INFORMATION
  Report Type: Spontaneous
  Country: US (occurrence: US)
  Receive Date: 20170626
  Receipt Date: 20170626
  Transmission Date: 20170830
  Serious: No
  Sender: FDA-Public Use
  Company Number: US-SUNOVION-2017SUN002540

PATIENT
  Age: 49 Year
  Sex: Female
  Weight: 46.71 kg

DRUGS (8)
  1. LATUDA [Suspect]
     Active Substance: LURASIDONE HYDROCHLORIDE
     Indication: ANXIETY
     Dosage: 80 MG, UNK
     Route: 048
     Dates: start: 20170525, end: 201706
  2. OTHER DRUGS FOR OBSTRUCTIVE AIRWAY DISEASES, INHALANTS [Concomitant]
     Indication: ASTHMA
     Dosage: UNK
  3. SYNTHROID [Concomitant]
     Active Substance: LEVOTHYROXINE SODIUM
     Dosage: UNK
  4. LATUDA [Suspect]
     Active Substance: LURASIDONE HYDROCHLORIDE
     Dosage: 60 MG, UNK
     Route: 048
     Dates: end: 20170525
  5. LATUDA [Suspect]
     Active Substance: LURASIDONE HYDROCHLORIDE
     Indication: DEPRESSION
     Dosage: 40 MG, UNK
     Route: 048
     Dates: start: 201706
  6. LATUDA [Suspect]
     Active Substance: LURASIDONE HYDROCHLORIDE
     Dosage: 40 MG, UNK
     Route: 048
     Dates: start: 2017
  7. LATUDA [Suspect]
     Active Substance: LURASIDONE HYDROCHLORIDE
     Dosage: 20 MG, UNK
     Route: 048
     Dates: start: 2017
  8. ALLERGY MEDICATION [Concomitant]
     Active Substance: DIPHENHYDRAMINE HYDROCHLORIDE
     Indication: HYPERSENSITIVITY
     Dosage: UNK

REACTIONS (7)
  - Weight decreased [Unknown]
  - Fall [Unknown]
  - Somnolence [Unknown]
  - Gait disturbance [Unknown]
  - Asthenia [Unknown]
  - Abnormal dreams [Unknown]
  - Off label use [Unknown]

NARRATIVE: CASE EVENT DATE: 2017
